FAERS Safety Report 14455218 (Version 5)
Quarter: 2018Q2

REPORT INFORMATION
  Report Type: Spontaneous
  Country: US (occurrence: US)
  Receive Date: 20180129
  Receipt Date: 20180416
  Transmission Date: 20180711
  Serious: Yes (Hospitalization)
  Sender: FDA-Public Use
  Company Number: US-ACTELION-A-US2018-166381

PATIENT
  Age: 52 Year
  Sex: Female

DRUGS (2)
  1. OPSUMIT [Suspect]
     Active Substance: MACITENTAN
     Indication: PULMONARY HYPERTENSION
     Dosage: 10 MG, QD
     Route: 048
     Dates: start: 20150310
  2. WARFARIN [Concomitant]
     Active Substance: WARFARIN

REACTIONS (7)
  - Nasal discomfort [Unknown]
  - Packed red blood cell transfusion [Unknown]
  - Abdominal discomfort [Unknown]
  - Epistaxis [Unknown]
  - Anaemia [Unknown]
  - Syncope [Unknown]
  - Upper gastrointestinal haemorrhage [Unknown]
